FAERS Safety Report 6455130-X (Version None)
Quarter: 2009Q4

REPORT INFORMATION
  Report Type: 
  Country: None (occurrence: None)
  Receive Date: 20091118
  Receipt Date: 20091104
  Transmission Date: 20100525
  Serious: Yes (Death, Other)
  Sender: FDA-Public Use
  Company Number: 0810017

PATIENT
  Age: 1 Month
  Sex: Female

DRUGS (1)
  1. ORFADIN [Suspect]
     Indication: TYROSINAEMIA
     Dosage: 8 MG (8 MG, 1 IN 1 D) ORAL
     Route: 048
     Dates: start: 20071206, end: 20080209

REACTIONS (10)
  - ANAEMIA [None]
  - ASCITES [None]
  - CARDIAC ARREST [None]
  - DISSEMINATED INTRAVASCULAR COAGULATION [None]
  - GASTROINTESTINAL HAEMORRHAGE [None]
  - HYPOVOLAEMIC SHOCK [None]
  - METABOLIC ACIDOSIS [None]
  - PERITONITIS BACTERIAL [None]
  - PNEUMONIA ASPIRATION [None]
  - SEPSIS [None]
